FAERS Safety Report 17616995 (Version 1)
Quarter: 2020Q2

REPORT INFORMATION
  Report Type: Spontaneous
  Country: US (occurrence: US)
  Receive Date: 20200402
  Receipt Date: 20200402
  Transmission Date: 20200713
  Serious: Yes (Other)
  Sender: FDA-Public Use
  Company Number: US-PFIZER INC-2020134494

PATIENT
  Age: 4 Year
  Sex: Female

DRUGS (7)
  1. IRINOTECAN [Concomitant]
     Active Substance: IRINOTECAN
     Indication: GLIONEURONAL TUMOUR
     Dosage: UNK, CYCLIC
  2. TEMOZOLOMIDE. [Concomitant]
     Active Substance: TEMOZOLOMIDE
     Indication: GLIONEURONAL TUMOUR
     Dosage: UNK, CYCLIC
     Route: 048
  3. CARBOPLATIN. [Concomitant]
     Active Substance: CARBOPLATIN
     Indication: GLIONEURONAL TUMOUR
     Dosage: UNK, CYCLIC
  4. CARBOPLATIN. [Concomitant]
     Active Substance: CARBOPLATIN
     Dosage: UNK, CYCLIC (MONTHERAPY)
  5. CYCLOPHOSPHAMIDE. [Concomitant]
     Active Substance: CYCLOPHOSPHAMIDE
     Indication: GLIONEURONAL TUMOUR
     Dosage: UNK, CYCLIC
  6. VINCRISTINE SULFATE. [Suspect]
     Active Substance: VINCRISTINE SULFATE
     Indication: GLIONEURONAL TUMOUR
     Dosage: UNK, CYCLIC
  7. VINBLASTINE [Concomitant]
     Active Substance: VINBLASTINE
     Indication: GLIONEURONAL TUMOUR
     Dosage: UNK, WEEKLY

REACTIONS (3)
  - Neuropathy peripheral [Unknown]
  - Product use in unapproved indication [Unknown]
  - Off label use [Unknown]
